FAERS Safety Report 7049492-2 (Version None)
Quarter: 2010Q4

REPORT INFORMATION
  Report Type: 
  Country: None (occurrence: None)
  Receive Date: 20101007
  Receipt Date: 20100922
  Transmission Date: 20110411
  Serious: Yes (Other)
  Sender: FDA-Public Use
  Company Number: IPC201009-000263

PATIENT
  Sex: Male

DRUGS (2)
  1. HYDROXYCHLOROQUINE SULFATE [Suspect]
     Dosage: 200 MG TABLETS, ORAL
     Route: 048
  2. METHOTREXATE [Suspect]
     Indication: RHEUMATOID ARTHRITIS
     Dosage: 2.5 MG, 6 TABLETS ONCE A WEEK, ORAL
     Route: 048

REACTIONS (3)
  - ALOPECIA [None]
  - DRUG INTERACTION [None]
  - VISION BLURRED [None]
